FAERS Safety Report 6220361-0 (Version None)
Quarter: 2009Q2

REPORT INFORMATION
  Report Type: 
  Country: None (occurrence: None)
  Receive Date: 20090610
  Receipt Date: 20090609
  Transmission Date: 20091009
  Serious: Yes (Other)
  Sender: FDA-Public Use
  Company Number: FR-PFIZER INC-2009170915

PATIENT

DRUGS (2)
  1. ZITHROMAX [Suspect]
  2. METRONIDAZOLE [Suspect]

REACTIONS (1)
  - NEUROPATHY PERIPHERAL [None]
